FAERS Safety Report 7112387-X (Version None)
Quarter: 2010Q4

REPORT INFORMATION
  Report Type: 
  Country: None (occurrence: None)
  Receive Date: 20101119
  Receipt Date: 20101004
  Transmission Date: 20110411
  Serious: No
  Sender: FDA-Public Use
  Company Number: A0884764A

PATIENT
  Age: 72 Year
  Sex: Male

DRUGS (4)
  1. AVODART [Suspect]
     Dosage: 1CAP PER DAY
     Route: 048
     Dates: start: 20100915
  2. NEXIUM [Concomitant]
  3. CRESTOR [Concomitant]
  4. LASIX [Concomitant]

REACTIONS (1)
  - DRY MOUTH [None]
